FAERS Safety Report 9630220 (Version 2)
Quarter: 2013Q4

REPORT INFORMATION
  Report Type: Spontaneous
  Country: GB (occurrence: GB)
  Receive Date: 20131017
  Receipt Date: 20131017
  Transmission Date: 20140711
  Serious: Yes (Disabling, Other)
  Sender: FDA-Public Use
  Company Number: GB-ACTAVIS-2006-06999

PATIENT
  Age: 28 Year
  Sex: Male

DRUGS (1)
  1. FLUOXETINE (UNKNOWN) [Suspect]
     Indication: DEPRESSION
     Dosage: 20 MG, UNK
     Route: 048
     Dates: start: 200602

REACTIONS (24)
  - Suicide attempt [Recovered/Resolved with Sequelae]
  - Suicidal ideation [Recovered/Resolved]
  - Loss of libido [Not Recovered/Not Resolved]
  - Tic [Not Recovered/Not Resolved]
  - Fatigue [Not Recovered/Not Resolved]
  - Anorgasmia [Not Recovered/Not Resolved]
  - Penis disorder [Not Recovered/Not Resolved]
  - Erectile dysfunction [Not Recovered/Not Resolved]
  - Semen volume decreased [Not Recovered/Not Resolved]
  - Memory impairment [Not Recovered/Not Resolved]
  - Dyskinesia [Not Recovered/Not Resolved]
  - Psychotic disorder [Recovered/Resolved with Sequelae]
  - Cognitive disorder [Not Recovered/Not Resolved]
  - Genital paraesthesia [Not Recovered/Not Resolved]
  - Apathy [Not Recovered/Not Resolved]
  - Erectile dysfunction [Not Recovered/Not Resolved]
  - Retrograde ejaculation [Not Recovered/Not Resolved]
  - Cognitive disorder [Not Recovered/Not Resolved]
  - Muscle spasms [Not Recovered/Not Resolved]
  - Akathisia [Recovered/Resolved]
  - Lethargy [Not Recovered/Not Resolved]
  - Blood testosterone decreased [Not Recovered/Not Resolved]
  - Apathy [Not Recovered/Not Resolved]
  - Muscle twitching [Not Recovered/Not Resolved]
